FAERS Safety Report 21945165 (Version 3)
Quarter: 2023Q1

REPORT INFORMATION
  Report Type: Spontaneous
  Country: JP (occurrence: JP)
  Receive Date: 20230202
  Receipt Date: 20230316
  Transmission Date: 20230417
  Serious: Yes (Hospitalization)
  Sender: FDA-Public Use
  Company Number: JP-ELI_LILLY_AND_COMPANY-JP202301012195

PATIENT
  Age: 69 Year
  Sex: Female

DRUGS (1)
  1. OLUMIANT [Suspect]
     Active Substance: BARICITINIB
     Indication: Rheumatoid arthritis
     Dosage: 2 MG, DAILY
     Route: 048
     Dates: start: 20211007, end: 20221226

REACTIONS (3)
  - Adenocarcinoma of colon [Not Recovered/Not Resolved]
  - Enterocolitis [Not Recovered/Not Resolved]
  - Failure to anastomose [Not Recovered/Not Resolved]

NARRATIVE: CASE EVENT DATE: 20221226
